FAERS Safety Report 13286885 (Version 2)
Quarter: 2017Q1

REPORT INFORMATION
  Report Type: Spontaneous
  Country: IS (occurrence: IS)
  Receive Date: 20170302
  Receipt Date: 20170308
  Transmission Date: 20170428
  Serious: Yes (Life-Threatening, Hospitalization, Other)
  Sender: FDA-Public Use
  Company Number: IS-ROCHE-1900197

PATIENT
  Age: 50 Year
  Sex: Female

DRUGS (1)
  1. XOLAIR [Suspect]
     Active Substance: OMALIZUMAB
     Indication: ASTHMA
     Route: 065

REACTIONS (13)
  - Hypoaesthesia oral [Unknown]
  - Diarrhoea [Unknown]
  - Dysuria [Unknown]
  - Rash [Unknown]
  - Vomiting [Unknown]
  - Asthma [Unknown]
  - Chest discomfort [Unknown]
  - Dyspnoea [Unknown]
  - Stridor [Unknown]
  - Urinary retention [Unknown]
  - Fall [Unknown]
  - Vasculitis [Unknown]
  - Forced expiratory volume decreased [Unknown]
